FAERS Safety Report 18685263 (Version 1)
Quarter: 2020Q4

REPORT INFORMATION
  Report Type: Report from Study
  Country: FR (occurrence: FR)
  Receive Date: 20201230
  Receipt Date: 20201230
  Transmission Date: 20210114
  Serious: Yes (Disabling, Other)
  Sender: FDA-Public Use
  Company Number: FR-ACS-001883

PATIENT
  Age: 3 Year
  Sex: Female

DRUGS (2)
  1. CEFTRIAXONE. [Suspect]
     Active Substance: CEFTRIAXONE
     Route: 065
  2. AMIKACIN. [Suspect]
     Active Substance: AMIKACIN
     Route: 065

REACTIONS (1)
  - Deafness [Not Recovered/Not Resolved]
